FAERS Safety Report 21297562 (Version 1)
Quarter: 2022Q3

REPORT INFORMATION
  Report Type: Spontaneous
  Country: US (occurrence: US)
  Receive Date: 20220906
  Receipt Date: 20220906
  Transmission Date: 20221027
  Serious: Yes (Other)
  Sender: FDA-Public Use
  Company Number: US-BRISTOL-MYERS SQUIBB COMPANY-2022-099873

PATIENT
  Age: 73 Year
  Sex: Male

DRUGS (1)
  1. REVLIMID [Suspect]
     Active Substance: LENALIDOMIDE
     Indication: Product used for unknown indication
     Dosage: TAKE 1 CAPSULE BY MOUTH DAILY FOR 21 DAYS AND 7 DAYS OFF EVERY 28 DAY CYCLE
     Route: 048
     Dates: start: 20220222

REACTIONS (5)
  - Weight decreased [Unknown]
  - Constipation [Unknown]
  - Dry skin [Unknown]
  - Neuropathy peripheral [Unknown]
  - Libido increased [Unknown]
